FAERS Safety Report 10673671 (Version 2)
Quarter: 2015Q1

REPORT INFORMATION
  Report Type: Report from Study
  Country: BR (occurrence: BR)
  Receive Date: 20141224
  Receipt Date: 20150106
  Transmission Date: 20150720
  Serious: Yes (Death, Hospitalization)
  Sender: FDA-Public Use
  Company Number: PHHY2014BR166794

PATIENT
  Age: 50 Year
  Sex: Male

DRUGS (1)
  1. SANDOSTATIN LAR DEPOT [Suspect]
     Active Substance: OCTREOTIDE ACETATE
     Indication: GASTROINTESTINAL CARCINOMA
     Dosage: UNK, EACH 28 DAYS
     Route: 065
     Dates: start: 201301

REACTIONS (11)
  - Blood pressure systolic increased [Fatal]
  - Loss of consciousness [Fatal]
  - Fall [Unknown]
  - Haemorrhagic stroke [Fatal]
  - Pain [Fatal]
  - Hypoaesthesia [Fatal]
  - Brain death [Fatal]
  - Cerebrovascular accident [Fatal]
  - Foaming at mouth [Unknown]
  - Product use issue [Unknown]
  - Hemiplegia [Fatal]

NARRATIVE: CASE EVENT DATE: 20141127
